FAERS Safety Report 12581626 (Version 1)
Quarter: 2016Q3

REPORT INFORMATION
  Report Type: Other
  Country: US (occurrence: US)
  Receive Date: 20160722
  Receipt Date: 20160722
  Transmission Date: 20161109
  Serious: Yes (Hospitalization)
  Sender: FDA-Public Use
  Company Number: US-JUBILANT GENERICS LIMITED-1055387

PATIENT
  Age: 61 Year
  Sex: Female

DRUGS (4)
  1. OXALIPLATIN. [Concomitant]
     Active Substance: OXALIPLATIN
  2. LORAZEPAM. [Suspect]
     Active Substance: LORAZEPAM
  3. FLUOROURACIL. [Concomitant]
     Active Substance: FLUOROURACIL
  4. OLANZAPINE. [Suspect]
     Active Substance: OLANZAPINE

REACTIONS (4)
  - Drug interaction [Recovered/Resolved]
  - Toxicity to various agents [Recovered/Resolved]
  - Respiratory depression [Recovered/Resolved]
  - Delirium [Recovered/Resolved]

NARRATIVE: CASE EVENT DATE: 20160712
